FAERS Safety Report 5712018-7 (Version None)
Quarter: 2008Q2

REPORT INFORMATION
  Report Type: 
  Country: None (occurrence: None)
  Receive Date: 20080417
  Receipt Date: 20080402
  Transmission Date: 20081010
  Serious: Yes (Disabling)
  Sender: FDA-Public Use
  Company Number: 2008000779

PATIENT
  Age: 61 Year
  Sex: Male

DRUGS (4)
  1. TARCEVA [Suspect]
     Indication: LUNG NEOPLASM MALIGNANT
     Dosage: 150 MG, QD, ORAL
     Route: 048
     Dates: start: 20061109
  2. XELODA [Suspect]
     Indication: LUNG NEOPLASM MALIGNANT
     Dosage: ORAL
     Route: 048
     Dates: start: 20070101, end: 20070501
  3. CASODEX [Concomitant]
  4. GONADORELIN INJ [Concomitant]

REACTIONS (8)
  - ACNE PUSTULAR [None]
  - DRUG INTERACTION [None]
  - DYSAESTHESIA [None]
  - GENITAL RASH [None]
  - NEURALGIA [None]
  - PARAESTHESIA [None]
  - RASH [None]
  - SKIN DISCOLOURATION [None]
